FAERS Safety Report 10129688 (Version 1)
Quarter: 2014Q2

REPORT INFORMATION
  Report Type: Spontaneous
  Country: US (occurrence: None)
  Receive Date: 20140424
  Receipt Date: 20140424
  Transmission Date: 20141212
  Serious: No
  Sender: FDA-Public Use
  Company Number: None

PATIENT
  Sex: Female

DRUGS (2)
  1. ENBREL [Suspect]
     Indication: RHEUMATOID ARTHRITIS
     Route: 058
     Dates: start: 20140401
  2. METHOTREXATE [Concomitant]

REACTIONS (6)
  - Dizziness [None]
  - Confusional state [None]
  - Memory impairment [None]
  - Pyrexia [None]
  - Injection site pain [None]
  - Aphthous stomatitis [None]
